FAERS Safety Report 5168238-6 (Version None)
Quarter: 2006Q4

REPORT INFORMATION
  Report Type: 
  Country: None (occurrence: None)
  Receive Date: 20061208
  Receipt Date: 20061204
  Transmission Date: 20070319
  Serious: Yes (Hospitalization)
  Sender: FDA-Public Use
  Company Number: FR-GLAXOSMITHKLINE-B0449342A

PATIENT
  Age: 13 Year
  Sex: Male
  Weight: 37 kg

DRUGS (2)
  1. AUGMENTIN '125' [Suspect]
     Route: 048
     Dates: start: 20061106, end: 20061109
  2. ADVIL [Suspect]
     Route: 048
     Dates: start: 20061102, end: 20061106

REACTIONS (6)
  - ABDOMINAL PAIN [None]
  - ANOREXIA [None]
  - BACK PAIN [None]
  - DIARRHOEA [None]
  - HAEMATURIA [None]
  - VOMITING [None]
